FAERS Safety Report 6542826-4 (Version None)
Quarter: 2010Q1

REPORT INFORMATION
  Report Type: 
  Country: None (occurrence: None)
  Receive Date: 20100114
  Receipt Date: 20100107
  Transmission Date: 20100710
  Serious: Yes (Other)
  Sender: FDA-Public Use
  Company Number: 2010AL000145

PATIENT
  Sex: Female

DRUGS (3)
  1. FLUOXETINE [Suspect]
     Dosage: 20 MG;PO
     Route: 048
  2. CLOZARIL [Concomitant]
  3. HYOSCINE HBR HYT [Concomitant]

REACTIONS (3)
  - CONSTIPATION [None]
  - ILEUS PARALYTIC [None]
  - VOMITING [None]
